FAERS Safety Report 12481893 (Version 1)
Quarter: 2016Q2

REPORT INFORMATION
  Report Type: Spontaneous
  Country: US (occurrence: US)
  Receive Date: 20160620
  Receipt Date: 20160620
  Transmission Date: 20160815
  Serious: Yes (Other)
  Sender: FDA-Public Use
  Company Number: US-BAUSCH-BL-2015-021841

PATIENT
  Sex: Male

DRUGS (2)
  1. PROVENGE [Suspect]
     Active Substance: SIPULEUCEL-T
     Dosage: 250 ML SINGLE
     Route: 042
     Dates: start: 20150828, end: 20150828
  2. PROVENGE [Suspect]
     Active Substance: SIPULEUCEL-T
     Indication: PRODUCT USED FOR UNKNOWN INDICATION
     Dosage: 250 ML SINGLE
     Route: 042
     Dates: start: 20150814, end: 20150814

REACTIONS (2)
  - Thrombosis [Unknown]
  - Neutrophil count decreased [Unknown]
